FAERS Safety Report 5316158-6 (Version None)
Quarter: 2007Q2

REPORT INFORMATION
  Report Type: 
  Country: None (occurrence: None)
  Receive Date: 20070503
  Receipt Date: 20070416
  Transmission Date: 20071010
  Serious: Yes (Other)
  Sender: FDA-Public Use
  Company Number: US-SHR-US-2007-015156

PATIENT

DRUGS (1)
  1. MAGNEVIST [Suspect]
     Indication: SCAN
     Dosage: 2 SCANS WITH 15 ML
     Route: 042

REACTIONS (1)
  - NEPHROGENIC FIBROSING DERMOPATHY [None]
